FAERS Safety Report 10495755 (Version 3)
Quarter: 2014Q4

REPORT INFORMATION
  Report Type: Spontaneous
  Country: FI (occurrence: FI)
  Receive Date: 20141003
  Receipt Date: 20141022
  Transmission Date: 20150528
  Serious: Yes (Other)
  Sender: FDA-Public Use
  Company Number: FI-ROCHE-1461017

PATIENT
  Age: 56 Year
  Sex: Female

DRUGS (9)
  1. PERJETA [Suspect]
     Active Substance: PERTUZUMAB
     Dosage: ACCORDING TO WEIGHT
     Route: 042
     Dates: start: 20140908, end: 20140908
  2. HERCEPTIN [Suspect]
     Active Substance: TRASTUZUMAB
     Route: 042
     Dates: start: 20140908, end: 20140908
  3. HERCEPTIN [Suspect]
     Active Substance: TRASTUZUMAB
     Indication: HER-2 POSITIVE BREAST CANCER
     Route: 042
     Dates: start: 20140728
  4. DOCETAXEL. [Suspect]
     Active Substance: DOCETAXEL
     Route: 065
     Dates: start: 20140908, end: 20140908
  5. HERCEPTIN [Suspect]
     Active Substance: TRASTUZUMAB
     Route: 042
     Dates: start: 20140818
  6. PERJETA [Suspect]
     Active Substance: PERTUZUMAB
     Dosage: ACCORDING TO WEIGHT
     Route: 042
     Dates: start: 20140818
  7. DOCETAXEL. [Suspect]
     Active Substance: DOCETAXEL
     Route: 065
     Dates: start: 20140818
  8. PERJETA [Suspect]
     Active Substance: PERTUZUMAB
     Indication: HER-2 POSITIVE BREAST CANCER
     Dosage: ACCORDING TO WEIGHT
     Route: 042
     Dates: start: 20140728
  9. DOCETAXEL. [Suspect]
     Active Substance: DOCETAXEL
     Indication: HER-2 POSITIVE BREAST CANCER
     Route: 065
     Dates: start: 20140728

REACTIONS (5)
  - Metastases to bone [Unknown]
  - Neoplasm progression [Unknown]
  - Diarrhoea [Recovered/Resolved]
  - Metastases to lung [Unknown]
  - Metastases to liver [Unknown]

NARRATIVE: CASE EVENT DATE: 20140923
